FAERS Safety Report 8174996-9 (Version None)
Quarter: 2012Q1

REPORT INFORMATION
  Report Type: 
  Country: None (occurrence: None)
  Receive Date: 20120229
  Receipt Date: 20120220
  Transmission Date: 20120608
  Serious: Yes (Hospitalization)
  Sender: FDA-Public Use
  Company Number: PHFR2012GB001273

PATIENT
  Age: 59 Year
  Sex: Male
  Weight: 103 kg

DRUGS (2)
  1. DICLOFENAC SODIUM [Suspect]
     Indication: GOUTY ARTHRITIS
     Dosage: 75 MG, UNK
     Route: 048
     Dates: end: 20110920
  2. FEBUXOSTAT [Suspect]
     Indication: GOUTY ARTHRITIS
     Dosage: 80 MG, QD
     Route: 048
     Dates: start: 20110311, end: 20110920

REACTIONS (4)
  - CORONARY ARTERY DISEASE [None]
  - ACUTE MYOCARDIAL INFARCTION [None]
  - TROPONIN INCREASED [None]
  - CHEST PAIN [None]
